FAERS Safety Report 17682128 (Version 1)
Quarter: 2020Q2

REPORT INFORMATION
  Report Type: Spontaneous
  Country: US (occurrence: US)
  Receive Date: 20200418
  Receipt Date: 20200418
  Transmission Date: 20200714
  Serious: No
  Sender: FDA-Public Use
  Company Number: US-ASTRAZENECA-2020SE27193

PATIENT
  Sex: Female

DRUGS (2)
  1. MONTELUKAST [Concomitant]
     Active Substance: MONTELUKAST SODIUM
  2. SYMBICORT [Suspect]
     Active Substance: BUDESONIDE\FORMOTEROL FUMARATE DIHYDRATE
     Indication: ASTHMA
     Dosage: 160/4.5 MCG 120 INHALATIONS UNKNOWN
     Route: 055

REACTIONS (5)
  - Dyspnoea [Unknown]
  - Product dose omission [Unknown]
  - Product packaging quantity issue [Unknown]
  - Device use issue [Unknown]
  - Inability to afford medication [Unknown]
